FAERS Safety Report 8214756-3 (Version None)
Quarter: 2012Q1

REPORT INFORMATION
  Report Type: 
  Country: None (occurrence: None)
  Receive Date: 20120316
  Receipt Date: 20120314
  Transmission Date: 20120608
  Serious: Yes (Life-Threatening, Hospitalization)
  Sender: FDA-Public Use
  Company Number: DE-B.I. PHARMACEUTICALS,INC./RIDGEFIELD-2012-DE-00379DE

PATIENT
  Sex: Male
  Weight: 90 kg

DRUGS (15)
  1. PRADAXA [Suspect]
     Indication: CEREBRAL INFARCTION
  2. RAMIPRIL [Concomitant]
     Indication: CORONARY ARTERY DISEASE
     Dosage: 5 MG
     Route: 048
     Dates: start: 20020101, end: 20120122
  3. BAYOTENSIN [Concomitant]
     Indication: HYPERTENSION
  4. PRADAXA [Suspect]
     Indication: ATRIAL FIBRILLATION
     Dosage: 220 MG
     Route: 048
     Dates: start: 20111019, end: 20120122
  5. BISOPROLOL FUMARATE [Concomitant]
     Indication: HYPERTENSION
  6. SIMVASTATIN [Concomitant]
     Indication: HYPERLIPIDAEMIA
     Dosage: 40 MG
     Route: 048
     Dates: start: 20020101, end: 20120122
  7. TORSEMIDE [Concomitant]
     Indication: HYPERTENSION
  8. ASPIRIN [Suspect]
     Indication: MYOCARDIAL INFARCTION
  9. ASPIRIN [Suspect]
     Indication: CORONARY ARTERY BYPASS
  10. RAMIPRIL [Concomitant]
     Indication: HYPERTENSION
  11. BAYOTENSIN [Concomitant]
     Indication: CORONARY ARTERY DISEASE
     Dosage: 20 MG
     Route: 048
     Dates: start: 20020101, end: 20120122
  12. TORSEMIDE [Concomitant]
     Indication: CORONARY ARTERY DISEASE
     Dosage: 5 MG
     Route: 048
     Dates: start: 20020101, end: 20120122
  13. ASPIRIN [Concomitant]
     Dosage: 100 MG
     Dates: start: 20020101, end: 20120122
  14. ASPIRIN [Suspect]
     Indication: CORONARY ARTERY DISEASE
     Dosage: 100 MG
     Route: 048
     Dates: start: 20020101, end: 20120122
  15. BISOPROLOL FUMARATE [Concomitant]
     Indication: CORONARY ARTERY DISEASE
     Dosage: 5 MG
     Route: 048
     Dates: start: 20020101, end: 20120122

REACTIONS (5)
  - SHOCK HAEMORRHAGIC [None]
  - HAEMOTHORAX [None]
  - MULTI-ORGAN FAILURE [None]
  - DISSEMINATED INTRAVASCULAR COAGULATION [None]
  - SEPSIS [None]
